FAERS Safety Report 20557338 (Version 2)
Quarter: 2022Q3

REPORT INFORMATION
  Report Type: Spontaneous
  Country: CA (occurrence: CA)
  Receive Date: 20220307
  Receipt Date: 20220730
  Transmission Date: 20221027
  Serious: Yes (Death, Hospitalization, Other)
  Sender: FDA-Public Use
  Company Number: CA-BAXTER-2022BAX004618

PATIENT
  Age: 44 Year
  Sex: Male

DRUGS (32)
  1. CYCLOPHOSPHAMIDE [Suspect]
     Active Substance: CYCLOPHOSPHAMIDE
     Indication: Acute lymphocytic leukaemia
     Dosage: DOSAGE FORM- NOT SPECIFIED
     Route: 065
  2. MESNA [Suspect]
     Active Substance: MESNA
     Indication: Acute lymphocytic leukaemia
     Dosage: DOSAGE FORM- NOT SPECIFIED, PRN
     Route: 065
  3. ALLOPURINOL [Suspect]
     Active Substance: ALLOPURINOL
     Indication: Acute lymphocytic leukaemia
     Route: 065
  4. CEFAZOLIN [Suspect]
     Active Substance: CEFAZOLIN
     Indication: Acute lymphocytic leukaemia
     Dosage: UNK
     Route: 065
  5. CHOLECALCIFEROL [Suspect]
     Active Substance: CHOLECALCIFEROL
     Indication: Product used for unknown indication
     Dosage: DOSAGE FORM: NOT SPECIFIED, PRN
     Route: 065
  6. CYCLOSPORINE [Suspect]
     Active Substance: CYCLOSPORINE
     Indication: Acute lymphocytic leukaemia
     Dosage: DOSAGE FORM- NOT SPECIFIED, PRN
     Route: 065
  7. CYTARABINE [Suspect]
     Active Substance: CYTARABINE
     Indication: Acute lymphocytic leukaemia
     Dosage: DOSAGE FORM- NOT SPECIFIED, PRN
     Route: 065
  8. DAUNORUBICIN HYDROCHLORIDE [Suspect]
     Active Substance: DAUNORUBICIN HYDROCHLORIDE
     Indication: Acute lymphocytic leukaemia
     Dosage: DOSAGE FORM- POWDER FOR SOLUTION INTRAVENOUS, PRN
     Route: 065
  9. DEXAMETHASONE [Suspect]
     Active Substance: DEXAMETHASONE
     Indication: Acute lymphocytic leukaemia
     Dosage: DOSAGE FORM: NOT SPECIFIED, PRN
     Route: 065
  10. ETOPOSIDE [Suspect]
     Active Substance: ETOPOSIDE
     Indication: Acute myeloid leukaemia
     Dosage: DOSAGE FORM: NOT SPECIFIED, PRN
     Route: 065
  11. FILGRASTIM [Suspect]
     Active Substance: FILGRASTIM
     Indication: Acute lymphocytic leukaemia
     Dosage: UNK, PRN
     Route: 065
  12. FUROSEMIDE [Suspect]
     Active Substance: FUROSEMIDE
     Indication: Acute lymphocytic leukaemia
     Dosage: DOSAGEFORM: NOT SPECIFIED, PM
     Route: 065
  13. METOCLOPRAMIDE [Suspect]
     Active Substance: METOCLOPRAMIDE
     Indication: Acute lymphocytic leukaemia
     Dosage: DOSAGEFORM: NOT SPECIFIED
     Route: 065
  14. ONDANSETRON [Suspect]
     Active Substance: ONDANSETRON
     Indication: Acute lymphocytic leukaemia
     Dosage: DOSAGEFORM: NOT SPECIFIED
     Route: 065
  15. HYDROCORTISONE [Suspect]
     Active Substance: HYDROCORTISONE
     Indication: Acute lymphocytic leukaemia
     Dosage: DOSAGE FORM- NOT SPECIFIED
     Route: 065
  16. ASPARAGINASE [Suspect]
     Active Substance: ASPARAGINASE
     Indication: Acute lymphocytic leukaemia
     Dosage: DOSAGE FORM- POWDER FOR SOLUTION INTRAMUSCULAR
     Route: 065
  17. LEUCOVORIN CALCIUM [Suspect]
     Active Substance: LEUCOVORIN CALCIUM
     Indication: Acute lymphocytic leukaemia
     Dosage: DOSAGE FORM- LIQUID INTRAVENOUS
     Route: 065
  18. MERCAPTOPURINE [Suspect]
     Active Substance: MERCAPTOPURINE
     Indication: Acute lymphocytic leukaemia
     Dosage: DOSAGE FORM- NOT SPECIFIED
     Route: 065
  19. METHOTREXATE [Suspect]
     Active Substance: METHOTREXATE
     Indication: Acute lymphocytic leukaemia
     Dosage: DOSAGE FORM- NOT SPECIFIED
     Route: 037
  20. CHOLECALCIFEROL [Suspect]
     Active Substance: CHOLECALCIFEROL
     Indication: Acute lymphocytic leukaemia
     Dosage: DOSAGEFORM: NOT SPECIFIED
     Route: 065
  21. METHYLPREDNISOLONE [Suspect]
     Active Substance: METHYLPREDNISOLONE
     Indication: Acute lymphocytic leukaemia
     Dosage: DOSAGE FORM- NOT SPECIFIED
     Route: 065
  22. ONCASPAR [Suspect]
     Active Substance: PEGASPARGASE
     Indication: Acute lymphocytic leukaemia
     Dosage: DOSAGE FORM- NOT SPECIFIED
     Route: 042
  23. PREDNISONE [Suspect]
     Active Substance: PREDNISONE
     Indication: Acute lymphocytic leukaemia
     Dosage: DOSAGE FORM- NOT SPECIFIED
     Route: 065
  24. VINCRISTINE SULFATE [Suspect]
     Active Substance: VINCRISTINE SULFATE
     Indication: Acute lymphocytic leukaemia
     Dosage: DOSAGE FORM- NOT SPECIFIED
     Route: 065
  25. FASTURTEC [Suspect]
     Active Substance: RASBURICASE
     Indication: Acute lymphocytic leukaemia
     Dosage: DOSAGE FORM: POWDER FOR SOLUTION INTRAVENOUS
     Route: 065
  26. ALLOPURINOL [Suspect]
     Active Substance: ALLOPURINOL
     Indication: Acute lymphocytic leukaemia
     Dosage: UNK, PRN
     Route: 065
  27. CEFAZOLIN [Suspect]
     Active Substance: CEFAZOLIN
     Indication: Acute lymphocytic leukaemia
     Dosage: UNK
     Route: 065
  28. METOCLOPRAMIDE [Suspect]
     Active Substance: METOCLOPRAMIDE
     Indication: Acute lymphocytic leukaemia
     Dosage: DOSAGE FORM- NOT SPECIFIED
     Route: 065
  29. MYCAMINE [Suspect]
     Active Substance: MICAFUNGIN SODIUM
     Indication: Acute lymphocytic leukaemia
     Dosage: DOSAGE FORM- POWDER FOR SOLUTION INTRAVENOUS
     Route: 065
  30. ONDANSETRON [Suspect]
     Active Substance: ONDANSETRON
     Indication: Acute lymphocytic leukaemia
     Dosage: DOSAGE FORM- NOT SPECIFIED
     Route: 065
  31. POTASSIUM [Suspect]
     Active Substance: POTASSIUM
     Indication: Acute lymphocytic leukaemia
     Dosage: DOSAGE FORM- NOT SPECIFIED
     Route: 065
  32. ZINECARD [Suspect]
     Active Substance: DEXRAZOXANE HYDROCHLORIDE
     Indication: Acute lymphocytic leukaemia
     Dosage: DOSAGE FORM- POWDER FOR SOLUTION INTRAVENOUS
     Route: 065

REACTIONS (9)
  - Clostridium difficile colitis [Fatal]
  - Cytomegalovirus viraemia [Fatal]
  - Disseminated aspergillosis [Fatal]
  - Lymphoid tissue hypoplasia [Fatal]
  - Thymus hypoplasia [Fatal]
  - Bacterial infection [Fatal]
  - Cellulitis [Fatal]
  - Fungal infection [Fatal]
  - Lymphopenia [Fatal]
